FAERS Safety Report 16812910 (Version 1)
Quarter: 2019Q3

REPORT INFORMATION
  Report Type: Other
  Country: US (occurrence: US)
  Receive Date: 20190916
  Receipt Date: 20190916
  Transmission Date: 20191005
  Serious: No
  Sender: FDA-Public Use
  Company Number: US-LEADIANT BIOSCIENCES INC-2018STPI000574

PATIENT
  Sex: Male

DRUGS (2)
  1. MATULANE [Suspect]
     Active Substance: PROCARBAZINE HYDROCHLORIDE
     Dosage: 100 MG, QD TUE/THU/SAT/SUN FOR 2 WEEKS EVERY 6 WEEKS
     Dates: start: 20180606
  2. MATULANE [Suspect]
     Active Substance: PROCARBAZINE HYDROCHLORIDE
     Indication: BRAIN NEOPLASM MALIGNANT
     Dosage: 150 MG, QD MON/WED/FRI FOR 2 WEEKS EVERY 6 WEEKS
     Route: 048
     Dates: start: 20180606

REACTIONS (1)
  - Headache [Unknown]
